FAERS Safety Report 12814398 (Version 1)
Quarter: 2016Q4

REPORT INFORMATION
  Report Type: Spontaneous
  Country: JP (occurrence: JP)
  Receive Date: 20161005
  Receipt Date: 20161005
  Transmission Date: 20170207
  Serious: Yes (Other)
  Sender: FDA-Public Use
  Company Number: JP-009507513-1610JPN000789

PATIENT
  Age: 55 Year
  Sex: Male

DRUGS (1)
  1. PROPECIA [Suspect]
     Active Substance: FINASTERIDE
     Indication: ALOPECIA
     Dosage: DAILY DOSAGE UNKNOWN
     Route: 048
     Dates: end: 201609

REACTIONS (2)
  - Dysphagia [Unknown]
  - Tongue paralysis [Unknown]

NARRATIVE: CASE EVENT DATE: 201609
